FAERS Safety Report 16016858 (Version 1)
Quarter: 2019Q1

REPORT INFORMATION
  Report Type: Spontaneous
  Country: US (occurrence: US)
  Receive Date: 20190228
  Receipt Date: 20190228
  Transmission Date: 20190418
  Serious: No
  Sender: FDA-Public Use
  Company Number: US-PFIZER INC-2019087060

PATIENT
  Age: 58 Year
  Sex: Male

DRUGS (5)
  1. ZOLOFT [Suspect]
     Active Substance: SERTRALINE HYDROCHLORIDE
     Dosage: 100 MG, UNK
  2. CALCIUM [Suspect]
     Active Substance: CALCIUM
     Dosage: 1000 IU, UNK
  3. VITAMIN B [Suspect]
     Active Substance: VITAMIN B
     Dosage: UNK
  4. MOBIC [Suspect]
     Active Substance: MELOXICAM
     Dosage: UNK; [7.5]
  5. OXYCODONE [Suspect]
     Active Substance: OXYCODONE
     Dosage: 5 MG, UNK

REACTIONS (1)
  - Drug hypersensitivity [Unknown]
